FAERS Safety Report 7596034-9 (Version None)
Quarter: 2011Q3

REPORT INFORMATION
  Report Type: 
  Country: None (occurrence: None)
  Receive Date: 20110707
  Receipt Date: 20110629
  Transmission Date: 20111222
  Serious: Yes (Hospitalization)
  Sender: FDA-Public Use
  Company Number: PHHY2011BR39260

PATIENT
  Sex: Male

DRUGS (5)
  1. EXELON [Suspect]
     Indication: AGGRESSION
     Dosage: 9MG/5CM2 30 SIST (PATCH) 1 PATCH EVERY 24
     Route: 062
  2. PROLOPA [Concomitant]
     Indication: PARKINSON'S DISEASE
     Dosage: 0.25 DF, TID
  3. SERTRALINE HYDROCHLORIDE [Concomitant]
     Indication: ANXIETY
     Dosage: 1 DF, QD
  4. TRANQUILIZER [Concomitant]
     Dosage: 1 TABLET TWICE A DAY
  5. SIFROL [Concomitant]
     Indication: PARKINSON'S DISEASE
     Dosage: 1 TABLET THREE TIMES A DAY

REACTIONS (3)
  - AGGRESSION [None]
  - DENGUE FEVER [None]
  - PNEUMONIA [None]
